FAERS Safety Report 5368177-1 (Version None)
Quarter: 2007Q2

REPORT INFORMATION
  Report Type: 
  Country: None (occurrence: None)
  Receive Date: 20070625
  Receipt Date: 20070620
  Transmission Date: 20071010
  Serious: Yes (Death)
  Sender: FDA-Public Use
  Company Number: PHBS2007JP10485

PATIENT
  Age: 2 Year
  Sex: Male
  Weight: 13 kg

DRUGS (4)
  1. VOLTAREN [Suspect]
     Route: 054
  2. NITROUS OXIDE W/ OXYGEN [Suspect]
  3. VECURONIUM BROMIDE [Suspect]
  4. FENTANYL [Suspect]

REACTIONS (3)
  - HEPATIC FAILURE [None]
  - MULTI-ORGAN FAILURE [None]
  - RHABDOMYOLYSIS [None]
